FAERS Safety Report 6733322-X (Version None)
Quarter: 2010Q2

REPORT INFORMATION
  Report Type: 
  Country: None (occurrence: None)
  Receive Date: 20100520
  Receipt Date: 20100510
  Transmission Date: 20101027
  Serious: Yes (Other)
  Sender: FDA-Public Use
  Company Number: BR-PFIZER INC-2010055229

PATIENT
  Age: 34 Year
  Sex: Male
  Weight: 67 kg

DRUGS (1)
  1. VIAGRA [Suspect]
     Dosage: 50 MG, UNK
     Route: 048
     Dates: start: 20100430

REACTIONS (7)
  - ACCIDENTAL EXPOSURE [None]
  - CHEST PAIN [None]
  - DIZZINESS [None]
  - FEELING ABNORMAL [None]
  - PALPITATIONS [None]
  - TREMOR [None]
  - VISUAL IMPAIRMENT [None]
